FAERS Safety Report 5046505-4 (Version None)
Quarter: 2006Q3

REPORT INFORMATION
  Report Type: 
  Country: None (occurrence: None)
  Receive Date: 20060705
  Receipt Date: 20060705
  Transmission Date: 20061208
  Serious: Yes (Life-Threatening)
  Sender: FDA-Public Use
  Company Number: None

PATIENT
  Age: 23 Year
  Sex: Male
  Weight: 66 kg

DRUGS (1)
  1. RITUXAN [Suspect]
     Indication: KIDNEY TRANSPLANT REJECTION
     Dosage: 600 MG   X1    IVPB
     Route: 042
     Dates: start: 20060226

REACTIONS (7)
  - BRADYCARDIA [None]
  - CARDIO-RESPIRATORY ARREST [None]
  - CHEST PAIN [None]
  - CONVULSION [None]
  - HAEMOPTYSIS [None]
  - HYPOTENSION [None]
  - VENTRICULAR TACHYCARDIA [None]
